FAERS Safety Report 17363496 (Version 3)
Quarter: 2020Q3

REPORT INFORMATION
  Report Type: Spontaneous
  Country: US (occurrence: US)
  Receive Date: 20200203
  Receipt Date: 20200825
  Transmission Date: 20201102
  Serious: Yes (Other)
  Sender: FDA-Public Use
  Company Number: US-ACTELION-A-US2020-200556

PATIENT
  Age: 53 Year
  Sex: Female
  Weight: 54.42 kg

DRUGS (3)
  1. OPSUMIT [Concomitant]
     Active Substance: MACITENTAN
  2. REVATIO [Concomitant]
     Active Substance: SILDENAFIL CITRATE
  3. VELETRI [Suspect]
     Active Substance: EPOPROSTENOL
     Indication: PULMONARY ARTERIAL HYPERTENSION
     Dosage: 40 NG/KG, PER MIN
     Route: 042

REACTIONS (8)
  - Device dislocation [Unknown]
  - Device alarm issue [Unknown]
  - Ankle fracture [Recovering/Resolving]
  - Catheter management [Unknown]
  - Pain [Unknown]
  - Headache [Unknown]
  - Product dose omission issue [Recovered/Resolved]
  - Complication associated with device [Unknown]

NARRATIVE: CASE EVENT DATE: 201910
